FAERS Safety Report 5861411-0 (Version None)
Quarter: 2008Q3

REPORT INFORMATION
  Report Type: 
  Country: None (occurrence: None)
  Receive Date: 20080827
  Receipt Date: 20080429
  Transmission Date: 20090109
  Serious: No
  Sender: FDA-Public Use
  Company Number: US-ABBOTT-08P-163-0449471-00

PATIENT
  Sex: Male
  Weight: 59.02 kg

DRUGS (12)
  1. NIASPAN [Suspect]
     Indication: HIGH DENSITY LIPOPROTEIN DECREASED
     Route: 048
     Dates: end: 20080201
  2. NIASPAN [Suspect]
     Indication: LOW DENSITY LIPOPROTEIN INCREASED
     Dosage: COATED, AT NIGHT
     Route: 048
     Dates: start: 20080201
  3. NIASPAN [Suspect]
     Dosage: AT NIGHT, WHITE
     Route: 048
     Dates: start: 20030101
  4. ATORVASTATIN CALCIUM [Concomitant]
     Indication: DRUG USE FOR UNKNOWN INDICATION
     Route: 048
  5. FISH OIL [Concomitant]
     Indication: DRUG USE FOR UNKNOWN INDICATION
     Route: 048
  6. NEVIRAPINE [Concomitant]
     Indication: HIV TEST POSITIVE
     Route: 048
  7. ISENTRESS [Concomitant]
     Indication: HIV TEST POSITIVE
     Route: 048
  8. TELMISARTAN [Concomitant]
     Indication: HYPERTENSION
     Route: 048
  9. LABETALOL HCL [Concomitant]
     Indication: HYPERTENSION
     Route: 048
  10. TESTOSTERONE [Concomitant]
     Indication: BLOOD TESTOSTERONE DECREASED
  11. ACETYLSALICYLIC ACID SRT [Concomitant]
     Indication: PROPHYLAXIS
  12. ACETYLSALICYLIC ACID SRT [Concomitant]
     Indication: CARDIAC DISORDER

REACTIONS (1)
  - BLOOD GLUCOSE INCREASED [None]
